FAERS Safety Report 7730458-1 (Version None)
Quarter: 2011Q3

REPORT INFORMATION
  Report Type: 
  Country: None (occurrence: None)
  Receive Date: 20110906
  Receipt Date: 20110901
  Transmission Date: 20111222
  Serious: Yes (Hospitalization, Other)
  Sender: FDA-Public Use
  Company Number: FR-PFIZER INC-2011203813

PATIENT
  Age: 53 Year
  Sex: Male

DRUGS (6)
  1. FEBUXOSTAT [Concomitant]
     Dosage: 1 DF, 1X/DAY
     Route: 048
  2. AMLODIPINE/VALSARTAN [Suspect]
     Dosage: 1 DF, 1X/DAY
     Route: 048
     Dates: end: 20110822
  3. FENOFIBRATE [Concomitant]
     Dosage: 1 DF, 1X/DAY
     Route: 048
  4. EFFEXOR XR [Suspect]
     Dosage: 75 MG, 1X/DAY
     Route: 048
  5. ANAFRANIL [Suspect]
     Dosage: 150 MG, 1X/DAY
     Route: 048
  6. ABILIFY [Suspect]
     Dosage: 15 MG, 2X/DAY
     Route: 048

REACTIONS (4)
  - HYPONATRAEMIA [None]
  - ORTHOSTATIC HYPOTENSION [None]
  - DEHYDRATION [None]
  - HYPOTHERMIA [None]
